FAERS Safety Report 25918759 (Version 1)
Quarter: 2025Q4

REPORT INFORMATION
  Report Type: Spontaneous
  Country: JP (occurrence: JP)
  Receive Date: 20251014
  Receipt Date: 20251014
  Transmission Date: 20260118
  Serious: Yes (Other)
  Sender: RANBAXY
  Company Number: JP-SUN PHARMACEUTICAL INDUSTRIES INC-2025R1-531357

PATIENT
  Age: 8 Year
  Sex: Male

DRUGS (2)
  1. ALENDRONATE [Suspect]
     Active Substance: ALENDRONATE SODIUM
     Indication: Calcinosis
     Dosage: UNK
     Route: 042
  2. Immunoglobulin [Concomitant]
     Indication: Calcinosis
     Dosage: 400 MILLIGRAM/KILOGRAM/DOSE
     Route: 042

REACTIONS (1)
  - Condition aggravated [Unknown]
